FAERS Safety Report 19509685 (Version 1)
Quarter: 2021Q3

REPORT INFORMATION
  Report Type: Spontaneous
  Country: AT (occurrence: AT)
  Receive Date: 20210709
  Receipt Date: 20210709
  Transmission Date: 20211014
  Serious: Yes (Hospitalization)
  Sender: FDA-Public Use
  Company Number: AT-AMGEN-AUTSP2021102263

PATIENT
  Age: 54 Year
  Sex: Female

DRUGS (2)
  1. NEULASTA [Suspect]
     Active Substance: PEGFILGRASTIM
     Indication: PRODUCT USED FOR UNKNOWN INDICATION
     Dosage: UNK, AFTER CHEMO (AFTER THE 1ST CHEMOTHERAPY, NEULASTA, AFTER THE 2ND CHEMOTHERAPY: NEULASTA AGAIN,
     Route: 065
     Dates: start: 201910
  2. LIXIANA [Concomitant]
     Active Substance: EDOXABAN TOSYLATE
     Dosage: UNK
     Dates: start: 201911

REACTIONS (6)
  - Bone pain [Recovered/Resolved]
  - Atrial fibrillation [Recovered/Resolved]
  - White blood cell count increased [Recovered/Resolved]
  - Atrial flutter [Recovered/Resolved]
  - Hypertensive crisis [Recovered/Resolved]
  - Dyspnoea [Recovered/Resolved]

NARRATIVE: CASE EVENT DATE: 201911
